FAERS Safety Report 4869574-0 (Version None)
Quarter: 2005Q4

REPORT INFORMATION
  Report Type: 
  Country: None (occurrence: None)
  Receive Date: 20051227
  Receipt Date: 20051215
  Transmission Date: 20060501
  Serious: Yes (Hospitalization)
  Sender: FDA-Public Use
  Company Number: HQWYE914809DEC05

PATIENT
  Age: 40 Year
  Sex: Male

DRUGS (12)
  1. RAPAMUNE [Suspect]
     Indication: PROPHYLAXIS AGAINST TRANSPLANT REJECTION
     Dosage: SEE IMAGE
     Route: 048
     Dates: start: 20040218, end: 20040214
  2. RAPAMUNE [Suspect]
     Indication: PROPHYLAXIS AGAINST TRANSPLANT REJECTION
     Dosage: SEE IMAGE
     Route: 048
     Dates: start: 20030404, end: 20040217
  3. RAPAMUNE [Suspect]
     Indication: PROPHYLAXIS AGAINST TRANSPLANT REJECTION
     Dosage: SEE IMAGE
     Route: 048
     Dates: start: 20040915
  4. SULFAMETHOXAZOLE W/TRIMETHOPRI (SULFAMETHOXAZOLE/TRIMETHOPRIM) [Concomitant]
  5. POTASSIUM CHLORIDE [Concomitant]
  6. ATENOLOL [Concomitant]
  7. NORVASC [Concomitant]
  8. NATRILIX (INDAPAMIDE) [Concomitant]
  9. COVERSYL (PERINDOPRIL) [Concomitant]
  10. SIMVASTATIN [Concomitant]
  11. CELLCEPT [Concomitant]
  12. PREDNISONE [Concomitant]

REACTIONS (3)
  - DRUG TOXICITY [None]
  - GLOMERULONEPHRITIS [None]
  - TRANSPLANT REJECTION [None]
